FAERS Safety Report 6048333-X (Version None)
Quarter: 2009Q1

REPORT INFORMATION
  Report Type: 
  Country: None (occurrence: None)
  Receive Date: 20090123
  Receipt Date: 20090114
  Transmission Date: 20090719
  Serious: Yes (Hospitalization)
  Sender: FDA-Public Use
  Company Number: JP-PFIZER INC-2009156553

PATIENT

DRUGS (3)
  1. AZULFIDINE [Suspect]
     Indication: RHEUMATOID ARTHRITIS
     Route: 048
     Dates: start: 20050101
  2. NORVASC [Concomitant]
  3. WARFARIN [Concomitant]

REACTIONS (1)
  - ANAEMIA [None]
